FAERS Safety Report 15603655 (Version 1)
Quarter: 2018Q4

REPORT INFORMATION
  Report Type: Spontaneous
  Country: IT (occurrence: IT)
  Receive Date: 20181109
  Receipt Date: 20181109
  Transmission Date: 20190205
  Serious: Yes (Hospitalization)
  Sender: FDA-Public Use
  Company Number: IT-MYLANLABS-2018M1084650

PATIENT
  Age: 66 Year
  Sex: Female

DRUGS (2)
  1. CARBOPLATIN. [Suspect]
     Active Substance: CARBOPLATIN
     Indication: PERITONEAL CANCER INDEX
     Dosage: 1 G, CYCLE
     Route: 042
     Dates: start: 20171102, end: 20171123
  2. PACLITAXEL. [Suspect]
     Active Substance: PACLITAXEL
     Indication: PERITONEAL CANCER INDEX
     Dosage: 1 G, CYCLE
     Route: 042
     Dates: start: 20171102, end: 20171123

REACTIONS (4)
  - Hypotension [Recovered/Resolved with Sequelae]
  - Dyspnoea [Recovered/Resolved with Sequelae]
  - Left ventricular dysfunction [Recovered/Resolved with Sequelae]
  - Tachycardia [Recovered/Resolved with Sequelae]

NARRATIVE: CASE EVENT DATE: 20171123
